FAERS Safety Report 8217640-4 (Version None)
Quarter: 2012Q1

REPORT INFORMATION
  Report Type: 
  Country: None (occurrence: None)
  Receive Date: 20120305
  Receipt Date: 20111024
  Transmission Date: 20120608
  Serious: No
  Sender: FDA-Public Use
  Company Number: 1000024893

PATIENT
  Age: 44 Year
  Sex: Female

DRUGS (28)
  1. XOPENEX (LEVOSALBUTAMOL HYDROCHLORIDE) (LEVOSALBUTAMOL HYDROCHLORIDE) [Concomitant]
  2. VICODIN (VICODIN) (VICODIN) [Concomitant]
  3. LEVAQUIN [Concomitant]
  4. AUGMENTIN (AMOXICILLIN CLAVULANATE) (AMOXICILLIN CLAVULANATE) [Concomitant]
  5. DALIRESP [Suspect]
     Indication: ASTHMA
     Dosage: 500 MCG (500 MCG, 1 IN 1 D), ORAL
     Route: 048
     Dates: start: 20110701
  6. AZITHROMYCIN [Concomitant]
  7. FLUTICASONE (FLUTICASONE) (FLUTICASONE) [Concomitant]
  8. NEXIUM [Concomitant]
  9. DIAZEPAM [Concomitant]
  10. ADVAIR (SERETIDE) (SERETIDE) [Concomitant]
  11. SERTRALINE HYDROCHLORIDE [Concomitant]
  12. PREDNISONE [Concomitant]
  13. VENTOLIN HFA (SALBUTAMOL SULFATE) (SALBUTAMOL SULFATE) [Concomitant]
  14. MUCINEX (GUAIFENESIN) (GUAIFENESIN) [Concomitant]
  15. LIDODERM (LIDOCAINE) (LIDOCAINE) [Concomitant]
  16. TUSSIONEX (HYDROCODONE, CHLORPHENIRAMINE) (HYDROCODONE, CHLORPHENIRAMI [Concomitant]
  17. SUMATRIPTAN SUCCINATE [Concomitant]
  18. SPIRIVA (TIOTROPIUM BROMIDE) (TIOTROPIUM BROMIDE) [Concomitant]
  19. MUTLIVITAMIN (NOS) (MULTIVITAMIN (NOS)) (MULTIVITAMIN (NOS)) [Concomitant]
  20. SUCRALFATE (SUCRALFATE) (SUCRALFATE) [Concomitant]
  21. LORATADINE (LORATADINE) (LORATADINE) [Concomitant]
  22. EPIPEN (EPINEPHRINE) (EPINEPHRINE) [Concomitant]
  23. ZOFRAN [Concomitant]
  24. DOXYCYCLINE [Concomitant]
  25. QVAR (BECLOMETASONE DIPROPIONATE) (BECLOMETASONE DIPROPIONATE) [Concomitant]
  26. SINGULAIR (MONTELUKAST SODIUM) (MONTELUKAST SODIUM) [Concomitant]
  27. MORPHINE [Concomitant]
  28. CALCIUM VITAMIN D (CALCIUM D3) (CALCIUM D3) [Concomitant]

REACTIONS (2)
  - GLOSSODYNIA [None]
  - OFF LABEL USE [None]
